FAERS Safety Report 23273714 (Version 6)
Quarter: 2024Q3

REPORT INFORMATION
  Report Type: Report from Study
  Country: JP (occurrence: JP)
  Receive Date: 20231207
  Receipt Date: 20240723
  Transmission Date: 20241017
  Serious: Yes (Hospitalization)
  Sender: BOEHRINGER INGELHEIM
  Company Number: JP-BoehringerIngelheim-2023-BI-269293

PATIENT
  Age: 73 Year
  Sex: Male
  Weight: 68.9 kg

DRUGS (4)
  1. NINTEDANIB [Suspect]
     Active Substance: NINTEDANIB
     Indication: Interstitial lung disease
     Route: 065
     Dates: start: 20231014, end: 20231023
  2. PIRFENIDONE [Suspect]
     Active Substance: PIRFENIDONE
     Indication: Interstitial lung disease
     Route: 065
     Dates: start: 20240226, end: 20240318
  3. PIRFENIDONE [Suspect]
     Active Substance: PIRFENIDONE
     Route: 065
     Dates: start: 20240319, end: 20240409
  4. PIRFENIDONE [Suspect]
     Active Substance: PIRFENIDONE
     Route: 065
     Dates: start: 20240410

REACTIONS (1)
  - Liver disorder [Recovered/Resolved]

NARRATIVE: CASE EVENT DATE: 20231023
